FAERS Safety Report 5835543-7 (Version None)
Quarter: 2008Q3

REPORT INFORMATION
  Report Type: 
  Country: None (occurrence: None)
  Receive Date: 20080806
  Receipt Date: 20080729
  Transmission Date: 20090109
  Serious: Yes (Death, Congenital Anomaly)
  Sender: FDA-Public Use
  Company Number: B0522842B

PATIENT
  Sex: Female
  Weight: 3 kg

DRUGS (6)
  1. RETROVIR [Suspect]
     Indication: HIV INFECTION
     Route: 065
  2. TELZIR [Suspect]
     Indication: HIV INFECTION
     Route: 065
  3. COMBIVIR [Suspect]
     Indication: HIV INFECTION
     Dosage: 1TAB TWICE PER DAY
     Dates: start: 20080104, end: 20080403
  4. VIDEX [Suspect]
     Indication: HIV INFECTION
     Route: 065
  5. NORVIR [Suspect]
     Indication: HIV INFECTION
     Route: 065
  6. KALETRA [Suspect]
     Indication: HIV INFECTION
     Dosage: 2TAB TWICE PER DAY
     Dates: start: 20080104, end: 20080403

REACTIONS (11)
  - AMNIOCENTESIS ABNORMAL [None]
  - ANAEMIA [None]
  - DRUG EXPOSURE DURING PREGNANCY [None]
  - INJURY [None]
  - INTRA-UTERINE DEATH [None]
  - LIP DISORDER [None]
  - PALLOR [None]
  - PATERNAL DRUGS AFFECTING FOETUS [None]
  - PLACENTAL DISORDER [None]
  - SKIN DISORDER [None]
  - SKULL MALFORMATION [None]
